FAERS Safety Report 16167507 (Version 2)
Quarter: 2019Q2

REPORT INFORMATION
  Report Type: Spontaneous
  Country: US (occurrence: US)
  Receive Date: 20190408
  Receipt Date: 20190415
  Transmission Date: 20190711
  Serious: Yes (Other)
  Sender: FDA-Public Use
  Company Number: US-CIPLA LTD.-2019US01769

PATIENT

DRUGS (15)
  1. FLUOROURACIL. [Suspect]
     Active Substance: FLUOROURACIL
     Indication: RECTAL CANCER RECURRENT
     Dosage: UNK, FOLFOX REGIMEN AND MAINTENANCE WITH BEVACIZUMAB AND HYDROXYCHLOROQUINE
     Route: 065
  2. CETUXIMAB. [Suspect]
     Active Substance: CETUXIMAB
     Indication: RECTAL CANCER RECURRENT
     Dosage: UNK
     Route: 065
  3. TIPIRACIL HYDROCHLORIDE W/TRIFLURIDINE [Suspect]
     Active Substance: TIPIRACIL HYDROCHLORIDE\TRIFLURIDINE
     Indication: RECTAL CANCER RECURRENT
     Dosage: UNK
     Route: 065
  4. FOLINIC ACID [Suspect]
     Active Substance: LEUCOVORIN
     Dosage: UNK, ZFOLFIRI, 16 CYCLES
     Route: 065
  5. IRINOTECAN [Suspect]
     Active Substance: IRINOTECAN
     Dosage: 126 MILLIGRAM/SQ. METER, LAST CYCLE, 16 CYCLES, ZFOLFIRI
     Route: 065
  6. OXALIPLATIN. [Suspect]
     Active Substance: OXALIPLATIN
     Indication: RECTAL CANCER RECURRENT
     Dosage: UNK
     Route: 065
  7. FLUOROURACIL. [Suspect]
     Active Substance: FLUOROURACIL
     Dosage: 2400 MILLIGRAM/SQ. METER, CYCLE 1, 16 CYCLES, ZFOLFIRI
     Route: 065
  8. ZIV-AFLIBERCEPT [Suspect]
     Active Substance: ZIV-AFLIBERCEPT
     Indication: RECTAL CANCER RECURRENT
     Dosage: 4 MILLIGRAM/KILOGRAM, CYCLE 1 AND LAST CYCLE, 16 CYCLES, ZFOLFIRI
     Route: 065
  9. BEVACIZUMAB. [Concomitant]
     Active Substance: BEVACIZUMAB
     Indication: RECTAL CANCER RECURRENT
     Dosage: UNK
     Route: 065
  10. FOLINIC ACID [Suspect]
     Active Substance: LEUCOVORIN
     Indication: RECTAL CANCER RECURRENT
     Dosage: UNK, FOLFOX REGIMEN
     Route: 065
  11. FLUOROURACIL. [Suspect]
     Active Substance: FLUOROURACIL
     Dosage: 1710 MILLIGRAM/SQ. METER, LAST CYCLE, 16 CYCLES, ZFOLFIRI REGIMEN
     Route: 065
  12. RAMUCIRUMAB [Suspect]
     Active Substance: RAMUCIRUMAB
     Indication: RECTAL CANCER RECURRENT
     Dosage: UNK
     Route: 065
  13. HYDROXYCHLOROQUINE [Concomitant]
     Active Substance: HYDROXYCHLOROQUINE
     Indication: RECTAL CANCER RECURRENT
     Dosage: UNK
     Route: 065
  14. IRINOTECAN [Suspect]
     Active Substance: IRINOTECAN
     Indication: RECTAL CANCER RECURRENT
     Dosage: UNK
     Route: 065
  15. IRINOTECAN [Suspect]
     Active Substance: IRINOTECAN
     Dosage: 180 MILLIGRAM/SQ. METER, CYCLE 1, 16 CYCLES, ZFOLFIRI
     Route: 065

REACTIONS (7)
  - Adverse drug reaction [Unknown]
  - Small intestinal obstruction [Recovered/Resolved]
  - Malignant neoplasm progression [Unknown]
  - Fatigue [Unknown]
  - Vomiting [Unknown]
  - Suicidal ideation [Unknown]
  - Nausea [Unknown]
